FAERS Safety Report 8802401 (Version 2)
Quarter: 2013Q1

REPORT INFORMATION
  Report Type: Spontaneous
  Country: US (occurrence: US)
  Receive Date: 20120921
  Receipt Date: 20130308
  Transmission Date: 20140127
  Serious: Yes (Hospitalization)
  Sender: FDA-Public Use
  Company Number: US-009507513-1209USA008954

PATIENT
  Age: 56 Year
  Sex: Female

DRUGS (13)
  1. TIMOPTIC [Suspect]
     Indication: INTRAOCULAR PRESSURE INCREASED
     Dosage: 2 GTT, BID
     Route: 047
  2. ACETAZOLAMIDE [Suspect]
     Indication: INTRAOCULAR PRESSURE INCREASED
     Dosage: UNK MG, UNK
     Route: 042
  3. BRIMONIDINE TARTRATE [Suspect]
     Indication: INTRAOCULAR PRESSURE INCREASED
     Dosage: 2 GTT, TID
     Route: 047
  4. PREDNISOLONE ACETATE [Suspect]
     Indication: INTRAOCULAR PRESSURE INCREASED
     Dosage: 2 GTT, QID
     Route: 047
  5. ATROPINE [Suspect]
     Indication: INTRAOCULAR PRESSURE INCREASED
     Dosage: UNK
     Route: 047
  6. TOPIRAMATE [Concomitant]
     Indication: MIGRAINE
     Dosage: 25 MG, QD
  7. TOPIRAMATE [Concomitant]
     Dosage: 50 MG, QD
  8. VENLAFAXINE HYDROCHLORIDE [Concomitant]
     Dosage: 150 MG, BID
  9. ATORVASTATIN [Concomitant]
     Dosage: 10 MG, QPM
  10. BUSPIRONE HYDROCHLORIDE [Concomitant]
     Dosage: 30 MG, BID
  11. MAXZIDE [Concomitant]
     Dosage: 12.5 MG, QD
  12. ESTRADIOL [Concomitant]
     Dosage: 0.037 MG/24-H
  13. PROGESTERONE [Concomitant]
     Dosage: 100 MG, BID

REACTIONS (1)
  - Drug ineffective [Unknown]
